FAERS Safety Report 8037173-8 (Version None)
Quarter: 2012Q1

REPORT INFORMATION
  Report Type: 
  Country: None (occurrence: None)
  Receive Date: 20120109
  Receipt Date: 20111229
  Transmission Date: 20120608
  Serious: Yes (Hospitalization)
  Sender: FDA-Public Use
  Company Number: 1150252

PATIENT
  Age: 74 Year
  Sex: Female

DRUGS (4)
  1. METHYLPREDNISOLONE [Suspect]
     Indication: PREMEDICATION
     Dosage: 40 MG MILLIGRAM(S), INTRAVENOUS
     Route: 042
     Dates: start: 20110810
  2. METHYLPREDNISOLONE [Suspect]
     Indication: PREMEDICATION
     Dosage: 40 MG MILLIGRAM(S), INTRAVENOUS
     Route: 042
     Dates: start: 20110817, end: 20110817
  3. PACLITAXEL [Suspect]
     Indication: METASTATIC BRONCHIAL CARCINOMA
     Dosage: 140 MG MILLIGRAM(S), INTRAVENOUS
     Route: 042
     Dates: start: 20110810
  4. CARBOPLATIN [Concomitant]

REACTIONS (10)
  - HALLUCINATION [None]
  - PERSECUTORY DELUSION [None]
  - INCOHERENT [None]
  - AGITATION [None]
  - DELIRIUM [None]
  - NEUTROPENIA [None]
  - CREATININE RENAL CLEARANCE DECREASED [None]
  - CONFUSIONAL STATE [None]
  - BLOOD GLUCOSE DECREASED [None]
  - AGGRESSION [None]
